FAERS Safety Report 4316544-7 (Version None)
Quarter: 2004Q1

REPORT INFORMATION
  Report Type: 
  Country: None (occurrence: None)
  Receive Date: 20040308
  Receipt Date: 20031124
  Transmission Date: 20041129
  Serious: Yes (Other)
  Sender: FDA-Public Use
  Company Number: PHEH2003US09552

PATIENT
  Age: 48 Year
  Sex: Male
  Weight: 94.8 kg

DRUGS (5)
  1. GLEEVEC [Suspect]
     Indication: CHRONIC MYELOID LEUKAEMIA
     Dosage: SEE IMAGE
     Route: 048
     Dates: start: 20030313, end: 20030904
  2. GLEEVEC [Suspect]
     Indication: CHRONIC MYELOID LEUKAEMIA
     Dosage: SEE IMAGE
     Route: 048
     Dates: start: 20030905, end: 20030921
  3. GLEEVEC [Suspect]
     Indication: CHRONIC MYELOID LEUKAEMIA
     Dosage: SEE IMAGE
     Route: 048
     Dates: start: 20030922, end: 20031002
  4. ADVIL [Concomitant]
  5. VIOXX [Concomitant]

REACTIONS (8)
  - ARTHRALGIA [None]
  - BLOOD ALKALINE PHOSPHATASE INCREASED [None]
  - BONE MARROW DEPRESSION [None]
  - BONE PAIN [None]
  - FUNGAL INFECTION [None]
  - NEUROPATHIC PAIN [None]
  - NEUTROPENIA [None]
  - PANCYTOPENIA [None]
